FAERS Safety Report 8261448 (Version 2)
Quarter: 2013Q1

REPORT INFORMATION
  Report Type: Report from Study
  Country: US (occurrence: US)
  Receive Date: 20111123
  Receipt Date: 20130128
  Transmission Date: 20140127
  Serious: Yes (Hospitalization, Other)
  Sender: FDA-Public Use
  Company Number: US-BAYER-2011-112444

PATIENT
  Age: 51 Year
  Sex: Female

DRUGS (7)
  1. INTERFERON BETA - 1B [Suspect]
     Indication: RELAPSING-REMITTING MULTIPLE SCLEROSIS
     Dosage: UNK
     Route: 058
     Dates: start: 19950720, end: 20110324
  2. ILLEGIBLE DRUG [Concomitant]
  3. LISINOPRIL [Concomitant]
  4. ZOLOFT [Concomitant]
  5. HYDROCHLOROTHIAZIDE [Concomitant]
  6. BACLOFEN [Concomitant]
  7. PRILOSEC [Concomitant]

REACTIONS (9)
  - Herpes simplex meningoencephalitis [Recovered/Resolved]
  - Convulsion [Recovered/Resolved]
  - Renal failure acute [Recovered/Resolved]
  - Immunodeficiency [Recovered/Resolved]
  - Headache [Recovered/Resolved]
  - Lethargy [Recovered/Resolved]
  - Diarrhoea [None]
  - Hypocalcaemia [None]
  - Pyrexia [Recovered/Resolved]
